FAERS Safety Report 6314930-7 (Version None)
Quarter: 2009Q3

REPORT INFORMATION
  Report Type: 
  Country: None (occurrence: None)
  Receive Date: 20090819
  Receipt Date: 20090812
  Transmission Date: 20100115
  Serious: Yes (Hospitalization)
  Sender: FDA-Public Use
  Company Number: A0801889A

PATIENT
  Age: 81 Year
  Sex: Male

DRUGS (5)
  1. ADVAIR HFA [Suspect]
     Indication: EMPHYSEMA
     Dosage: 1PUFF TWICE PER DAY
     Route: 055
     Dates: start: 20081201
  2. ALBUTEROL [Concomitant]
  3. LOPRESOR [Concomitant]
  4. ALBUTEROL [Concomitant]
  5. STEROIDS [Concomitant]

REACTIONS (3)
  - BRONCHITIS [None]
  - COUGH [None]
  - PNEUMONIA [None]
